FAERS Safety Report 8520866-3 (Version None)
Quarter: 2012Q2

REPORT INFORMATION
  Report Type: 
  Country: None (occurrence: None)
  Receive Date: 20120409
  Receipt Date: 20120125
  Transmission Date: 20120825
  Serious: Yes (Other)
  Sender: FDA-Public Use
  Company Number: PHEH2012US002160

PATIENT
  Age: 54 Year
  Sex: Male

DRUGS (4)
  1. VITAMIN D [Concomitant]
  2. VALTURNA [Suspect]
     Dosage: 1DF, QD
  3. THYROID MEDICINE (THYROID MEDICINE) [Concomitant]
  4. CALCIUM CARBONATE [Concomitant]

REACTIONS (4)
  - PALPITATIONS [None]
  - MUSCLE SPASMS [None]
  - WRONG TECHNIQUE IN DRUG USAGE PROCESS [None]
  - BLOOD PRESSURE DIASTOLIC DECREASED [None]
